FAERS Safety Report 5887677-9 (Version None)
Quarter: 2008Q3

REPORT INFORMATION
  Report Type: 
  Country: None (occurrence: None)
  Receive Date: 20080916
  Receipt Date: 20080909
  Transmission Date: 20090109
  Serious: Yes (Hospitalization, Other)
  Sender: FDA-Public Use
  Company Number: WAES 0809USA00981

PATIENT
  Age: 71 Year
  Sex: Male
  Weight: 94.8018 kg

DRUGS (21)
  1. CAP VORINOSTAT 100 MG [Suspect]
     Indication: MULTIPLE MYELOMA
     Dosage: 300 MG/DAILY/PO, 300 MG/DAILY/PO, 300 MG/DAILY/PO, 300 MG/DAILY/PO
     Route: 048
     Dates: start: 20080422, end: 20080512
  2. CAP VORINOSTAT 100 MG [Suspect]
     Indication: MULTIPLE MYELOMA
     Dosage: 300 MG/DAILY/PO, 300 MG/DAILY/PO, 300 MG/DAILY/PO, 300 MG/DAILY/PO
     Route: 048
     Dates: start: 20080520, end: 20080526
  3. CAP VORINOSTAT 100 MG [Suspect]
     Indication: MULTIPLE MYELOMA
     Dosage: 300 MG/DAILY/PO, 300 MG/DAILY/PO, 300 MG/DAILY/PO, 300 MG/DAILY/PO
     Route: 048
     Dates: start: 20080617, end: 20080703
  4. CAP VORINOSTAT 100 MG [Suspect]
     Indication: MULTIPLE MYELOMA
     Dosage: 300 MG/DAILY/PO, 300 MG/DAILY/PO, 300 MG/DAILY/PO, 300 MG/DAILY/PO
     Route: 048
     Dates: start: 20080715, end: 20080731
  5. REVLIMID [Suspect]
     Indication: MULTIPLE MYELOMA
     Dosage: 10MG/DAILY/PO, 10MG/DAILY/PO, 5MG/DAILY/PO, 5MG/DAILY/PO
     Route: 048
     Dates: start: 20080422, end: 20080512
  6. REVLIMID [Suspect]
     Indication: MULTIPLE MYELOMA
     Dosage: 10MG/DAILY/PO, 10MG/DAILY/PO, 5MG/DAILY/PO, 5MG/DAILY/PO
     Route: 048
     Dates: start: 20080520, end: 20080602
  7. REVLIMID [Suspect]
     Indication: MULTIPLE MYELOMA
     Dosage: 10MG/DAILY/PO, 10MG/DAILY/PO, 5MG/DAILY/PO, 5MG/DAILY/PO
     Route: 048
     Dates: start: 20080617, end: 20080714
  8. REVLIMID [Suspect]
     Indication: MULTIPLE MYELOMA
     Dosage: 10MG/DAILY/PO, 10MG/DAILY/PO, 5MG/DAILY/PO, 5MG/DAILY/PO
     Route: 048
     Dates: start: 20080805, end: 20080811
  9. TAB DEXAMETHASONE 40MG [Suspect]
     Indication: MULTIPLE MYELOMA
     Dosage: 40MG/WKY/PO, 40MG/WKY/PO, 40MG/WKY/PO, 40MG/WKY/PO
     Route: 048
     Dates: start: 20080422, end: 20080513
  10. TAB DEXAMETHASONE 40MG [Suspect]
     Indication: MULTIPLE MYELOMA
     Dosage: 40MG/WKY/PO, 40MG/WKY/PO, 40MG/WKY/PO, 40MG/WKY/PO
     Route: 048
     Dates: start: 20080520, end: 20080616
  11. TAB DEXAMETHASONE 40MG [Suspect]
     Indication: MULTIPLE MYELOMA
     Dosage: 40MG/WKY/PO, 40MG/WKY/PO, 40MG/WKY/PO, 40MG/WKY/PO
     Route: 048
     Dates: start: 20080617, end: 20080714
  12. TAB DEXAMETHASONE 40MG [Suspect]
     Indication: MULTIPLE MYELOMA
     Dosage: 40MG/WKY/PO, 40MG/WKY/PO, 40MG/WKY/PO, 40MG/WKY/PO
     Route: 048
     Dates: start: 20080715, end: 20080729
  13. ASPIRIN [Suspect]
     Indication: ANTICOAGULANT THERAPY
     Dosage: 81 MG/DAILY/PO
     Route: 048
     Dates: start: 20080421
  14. BENICAR [Concomitant]
  15. LOVENOX [Concomitant]
  16. SULAR [Concomitant]
  17. TIMOPTIC [Concomitant]
  18. ZOCOR [Concomitant]
  19. ZOMETA [Concomitant]
  20. [THERAPY UNSPECIFIED] [Concomitant]
  21. ALLOPURINOL [Concomitant]

REACTIONS (6)
  - BLOOD PH ABNORMAL [None]
  - HAEMATOCRIT DECREASED [None]
  - HAEMOGLOBIN DECREASED [None]
  - PNEUMONIA [None]
  - PO2 DECREASED [None]
  - PYREXIA [None]
